FAERS Safety Report 4984531-1 (Version None)
Quarter: 2006Q2

REPORT INFORMATION
  Report Type: 
  Country: None (occurrence: None)
  Receive Date: 20060421
  Receipt Date: 20060411
  Transmission Date: 20061013
  Serious: Yes (Death)
  Sender: FDA-Public Use
  Company Number: S06-CAN-00623-01

PATIENT
  Age: 59 Year
  Sex: Male

DRUGS (4)
  1. CELEXA [Suspect]
     Indication: ANXIETY
     Dosage: 20 MG QD PO
     Route: 048
     Dates: start: 20040713, end: 20040717
  2. CELEXA [Suspect]
     Indication: MAJOR DEPRESSION
     Dosage: 20 MG QD PO
     Route: 048
     Dates: start: 20040713, end: 20040717
  3. CELEXA [Suspect]
     Indication: SUICIDAL IDEATION
     Dosage: 20 MG QD PO
     Route: 048
     Dates: start: 20040713, end: 20040717
  4. OXAZEPAM [Concomitant]

REACTIONS (13)
  - AGITATION [None]
  - ANXIETY [None]
  - COMPLETED SUICIDE [None]
  - DRUG ADMINISTRATION ERROR [None]
  - GUN SHOT WOUND [None]
  - HAEMORRHAGE [None]
  - HYPERHIDROSIS [None]
  - INCORRECT DOSE ADMINISTERED [None]
  - INTRACRANIAL INJURY [None]
  - IRRITABILITY [None]
  - NERVOUSNESS [None]
  - RESTLESSNESS [None]
  - WOUND EVISCERATION [None]
